FAERS Safety Report 8369296-8 (Version None)
Quarter: 2012Q2

REPORT INFORMATION
  Report Type: 
  Country: None (occurrence: None)
  Receive Date: 20120517
  Receipt Date: 20120517
  Transmission Date: 20120825
  Serious: Yes (Other)
  Sender: FDA-Public Use
  Company Number: None

PATIENT
  Age: 34 Year
  Sex: Male
  Weight: 90.7194 kg

DRUGS (2)
  1. LISTERINE WHITENING RINSE CLEAN MINT (ORAL CARE PRODUCTS) LIQUID [Suspect]
     Indication: TOOTH DISCOLOURATION
     Dosage: , 1 IN 3 DAY, ORAL
     Route: 048
     Dates: end: 20120426
  2. LEVOCETIRIZINE (LEVOCETIRIZINE) [Concomitant]

REACTIONS (4)
  - APPLICATION SITE BLEEDING [None]
  - ORAL DISORDER [None]
  - ORAL DISCOMFORT [None]
  - HAEMORRHAGIC URTICARIA [None]
